FAERS Safety Report 7985800 (Version 3)
Quarter: 2013Q4

REPORT INFORMATION
  Report Type: Spontaneous
  Country: US (occurrence: US)
  Receive Date: 20110610
  Receipt Date: 20131223
  Transmission Date: 20140711
  Serious: Yes (Hospitalization, Other)
  Sender: FDA-Public Use
  Company Number: US-BAYER-2011-049795

PATIENT
  Age: 26 Year
  Sex: Female
  Weight: 81.63 kg

DRUGS (4)
  1. OCELLA [Suspect]
     Indication: CONTRACEPTION
     Dosage: 1 UNK, QD
     Route: 048
     Dates: start: 2008, end: 2009
  2. OCELLA [Suspect]
     Indication: DYSMENORRHOEA
  3. OXYCODONE [Concomitant]
     Indication: PAIN
     Dosage: 5 MG, Q4HR
     Route: 048
     Dates: start: 20091025
  4. REGLAN [Concomitant]
     Indication: VOMITING
     Dosage: 10 MG, Q4HR
     Dates: start: 20091025

REACTIONS (3)
  - Gallbladder disorder [None]
  - Abdominal pain [None]
  - Cholelithiasis [None]
